FAERS Safety Report 8582881-3 (Version None)
Quarter: 2012Q3

REPORT INFORMATION
  Report Type: 
  Country: None (occurrence: None)
  Receive Date: 20120809
  Receipt Date: 20120807
  Transmission Date: 20120928
  Serious: No
  Sender: FDA-Public Use
  Company Number: US-BAYER-2012-073426

PATIENT
  Age: 50 Year
  Sex: Female
  Weight: 72.562 kg

DRUGS (11)
  1. AMOXICILLIN [Concomitant]
     Dosage: 250 MG, UNK
  2. DETROL [Concomitant]
     Indication: URINARY INCONTINENCE
     Dosage: 1 MG, UNK
     Dates: start: 20120101
  3. DETROL [Concomitant]
     Dosage: 4 MG, QD
  4. PROVIGIL [Concomitant]
     Indication: ASTHENIA
     Dosage: 100 MG, QD
     Dates: start: 20000101
  5. SIMVASTATIN [Concomitant]
     Dosage: 20 MG, QD
     Dates: start: 20120101
  6. CYMBALTA [Concomitant]
     Indication: PAIN
     Dosage: 20 MG, UNK
     Dates: start: 20000101
  7. SIMVASTATIN [Concomitant]
     Indication: HYPERCHOLESTEROLAEMIA
     Dosage: 10 MG, UNK
  8. MULTIVITAMIN PREPARATION + MINERAL SUPPLEMENT [Concomitant]
  9. BETASERON [Suspect]
     Indication: MULTIPLE SCLEROSIS
     Dosage: .25 MG, QOD
     Route: 058
     Dates: start: 20090101
  10. CYMBALTA [Concomitant]
     Indication: ANXIETY
     Dosage: 60 MG, QD
  11. VICODIN [Concomitant]
     Dosage: UNK

REACTIONS (1)
  - SKIN PAPILLOMA [None]
